FAERS Safety Report 4643113-1 (Version None)
Quarter: 2005Q2

REPORT INFORMATION
  Report Type: 
  Country: None (occurrence: None)
  Receive Date: 20050422
  Receipt Date: 20050222
  Transmission Date: 20051028
  Serious: Yes (Other)
  Sender: FDA-Public Use
  Company Number: 2005035164

PATIENT
  Sex: Female
  Weight: 58.9676 kg

DRUGS (3)
  1. GENOTROPIN [Suspect]
     Indication: ILL-DEFINED DISORDER
     Dosage: (DAILY)
     Dates: start: 20031101
  2. LAMOTRIGINE [Concomitant]
  3. CLORAZEPATE DIPOTASSIUM [Concomitant]

REACTIONS (5)
  - ABASIA [None]
  - CIRCULATORY COLLAPSE [None]
  - DEVICE FAILURE [None]
  - DRUG DOSE OMISSION [None]
  - PAIN IN EXTREMITY [None]
